FAERS Safety Report 23891935 (Version 1)
Quarter: 2024Q2

REPORT INFORMATION
  Report Type: Spontaneous
  Country: US (occurrence: None)
  Receive Date: 20240524
  Receipt Date: 20240524
  Transmission Date: 20240716
  Serious: No
  Sender: FDA-Public Use
  Company Number: US-ROCHE-3482295

PATIENT
  Age: 26 Year
  Sex: Female

DRUGS (2)
  1. ACTEMRA [Suspect]
     Active Substance: TOCILIZUMAB
     Indication: Rheumatoid arthritis
     Route: 065
  2. ACTEMRA [Suspect]
     Active Substance: TOCILIZUMAB
     Route: 065

REACTIONS (5)
  - Pain [Unknown]
  - Gastrointestinal disorder [Not Recovered/Not Resolved]
  - Dry mouth [Not Recovered/Not Resolved]
  - Ill-defined disorder [Unknown]
  - Off label use [Unknown]

NARRATIVE: CASE EVENT DATE: 20200101
